FAERS Safety Report 4947050-4 (Version None)
Quarter: 2006Q1

REPORT INFORMATION
  Report Type: 
  Country: None (occurrence: None)
  Receive Date: 20060314
  Receipt Date: 20060306
  Transmission Date: 20060701
  Serious: Yes (Hospitalization, Other)
  Sender: FDA-Public Use
  Company Number: USA-2006-0023687

PATIENT
  Age: 49 Year
  Sex: Female

DRUGS (3)
  1. OXYCONTIN [Suspect]
     Indication: BACK PAIN
     Dosage: 160 MG, Q8H
  2. LISINOPRIL [Concomitant]
  3. SYNTHROID [Concomitant]

REACTIONS (10)
  - ABASIA [None]
  - AMNESIA [None]
  - BEDRIDDEN [None]
  - CARDIAC FAILURE CONGESTIVE [None]
  - COMA [None]
  - DRUG WITHDRAWAL SYNDROME [None]
  - ECONOMIC PROBLEM [None]
  - INTENTIONAL DRUG MISUSE [None]
  - MYOCARDIAL INFARCTION [None]
  - PNEUMONIA [None]
